FAERS Safety Report 15440108 (Version 1)
Quarter: 2018Q3

REPORT INFORMATION
  Report Type: Spontaneous
  Country: US (occurrence: US)
  Receive Date: 20180925
  Receipt Date: 20180925
  Transmission Date: 20181010
  Serious: No
  Sender: FDA-Public Use
  Company Number: None

PATIENT
  Age: 73 Year
  Sex: Male

DRUGS (2)
  1. ABACAVIR/LAMIVUDINE [Concomitant]
     Active Substance: ABACAVIR\LAMIVUDINE
  2. EFAVIRENZ TAB 600MG [Suspect]
     Active Substance: EFAVIRENZ
     Indication: HIV INFECTION
     Dates: start: 201801

REACTIONS (1)
  - Pruritus [None]

NARRATIVE: CASE EVENT DATE: 20180917
